FAERS Safety Report 23248624 (Version 1)
Quarter: 2023Q4

REPORT INFORMATION
  Report Type: Report from Study
  Country: US (occurrence: US)
  Receive Date: 20231201
  Receipt Date: 20231201
  Transmission Date: 20240109
  Serious: Yes (Hospitalization, Other)
  Sender: FDA-Public Use
  Company Number: US-ALXN-A202307356AA

PATIENT
  Sex: Male

DRUGS (4)
  1. SOLIRIS [Suspect]
     Active Substance: ECULIZUMAB
     Indication: Atypical haemolytic uraemic syndrome
     Dosage: 1500 MG, UNK
     Route: 065
  2. HEPARIN [Concomitant]
     Active Substance: HEPARIN SODIUM
     Indication: Product used for unknown indication
     Dosage: UNK
     Route: 065
  3. PENICILLIN G [Concomitant]
     Active Substance: PENICILLIN G
     Indication: Antibiotic prophylaxis
     Dosage: UNK, UNK, BID
     Route: 065
  4. PLAVIX [Concomitant]
     Active Substance: CLOPIDOGREL BISULFATE
     Indication: Product used for unknown indication

REACTIONS (15)
  - Unresponsive to stimuli [Unknown]
  - Chromosomal mutation [Unknown]
  - Speech disorder [Unknown]
  - Vitamin B12 deficiency [Unknown]
  - Gait disturbance [Unknown]
  - Fall [Unknown]
  - Clostridium difficile colitis [Recovered/Resolved]
  - Chills [Unknown]
  - Haemoglobin decreased [Not Recovered/Not Resolved]
  - Epistaxis [Not Recovered/Not Resolved]
  - Physical deconditioning [Unknown]
  - Gait inability [Not Recovered/Not Resolved]
  - Pharyngeal erythema [Unknown]
  - Pelvic mass [Unknown]
  - Oropharyngeal pain [Unknown]
